FAERS Safety Report 25944475 (Version 2)
Quarter: 2025Q4

REPORT INFORMATION
  Report Type: Spontaneous
  Country: RU (occurrence: RU)
  Receive Date: 20251021
  Receipt Date: 20251120
  Transmission Date: 20260118
  Serious: Yes (Hospitalization, Other)
  Sender: SANDOZ
  Company Number: RU-BIOCAD-8318

PATIENT
  Age: 20 Year
  Sex: Female

DRUGS (1)
  1. METHOTREXATE [Suspect]
     Active Substance: METHOTREXATE
     Indication: Systemic lupus erythematosus
     Dosage: 15 MG, QW
     Route: 048
     Dates: start: 202303

REACTIONS (4)
  - Chronic respiratory failure [Recovered/Resolved]
  - Pericarditis [Not Recovered/Not Resolved]
  - Pneumonia [Recovered/Resolved]
  - Pericardial effusion [Recovered/Resolved]

NARRATIVE: CASE EVENT DATE: 20250820
